FAERS Safety Report 17100362 (Version 1)
Quarter: 2019Q4

REPORT INFORMATION
  Report Type: Spontaneous
  Country: FR (occurrence: FR)
  Receive Date: 20191202
  Receipt Date: 20191202
  Transmission Date: 20200122
  Serious: Yes (Disabling)
  Sender: FDA-Public Use
  Company Number: FR-MYLANLABS-2019M1115975

PATIENT
  Age: 70 Year
  Sex: Female
  Weight: 66 kg

DRUGS (6)
  1. LIPANTHYL [Suspect]
     Active Substance: FENOFIBRATE
     Indication: DYSLIPIDAEMIA
     Dosage: 165 MILLIGRAM, QD
     Route: 048
     Dates: start: 2000, end: 20190617
  2. ZEJULA [Suspect]
     Active Substance: NIRAPARIB
     Dosage: 300 MILLIGRAM, QD
     Route: 048
     Dates: start: 201902, end: 20190220
  3. CACIT VITAMINE D3 [Concomitant]
     Active Substance: CALCIUM CARBONATE\CHOLECALCIFEROL
     Dosage: UNK, 500 MG/440 UI, COMPRIM? ? SUCER OU ? CROQUER
  4. ZEJULA [Suspect]
     Active Substance: NIRAPARIB
     Indication: OVARIAN EPITHELIAL CANCER
     Dosage: 200 MILLIGRAM, QD
     Route: 048
     Dates: start: 20190307, end: 20190617
  5. KARDEGIC [Concomitant]
     Active Substance: ASPIRIN DL-LYSINE
     Dosage: UNK
  6. TINZAPARINE SODIQUE [Concomitant]
     Active Substance: TINZAPARIN SODIUM
     Dosage: MAMMIFERE/PORC/MUQUEUSE INTESTINALE

REACTIONS (3)
  - Pancytopenia [Not Recovered/Not Resolved]
  - Overdose [Not Recovered/Not Resolved]
  - Acute kidney injury [Not Recovered/Not Resolved]

NARRATIVE: CASE EVENT DATE: 201810
